FAERS Safety Report 8307637-8 (Version None)
Quarter: 2012Q2

REPORT INFORMATION
  Report Type: 
  Country: None (occurrence: None)
  Receive Date: 20120424
  Receipt Date: 20120417
  Transmission Date: 20120825
  Serious: Yes (Hospitalization)
  Sender: FDA-Public Use
  Company Number: MX-B.I. PHARMACEUTICALS,INC./RIDGEFIELD-2012-MX-00127MX

PATIENT
  Age: 65 Year
  Sex: Male

DRUGS (2)
  1. AMARYL [Concomitant]
     Indication: DIABETES MELLITUS
     Dosage: STRENGTH: 4MG + 1000; DAILY DOSE: ONE TABLET DAILY
     Route: 048
     Dates: start: 20100101
  2. TRADJENTA [Suspect]
     Indication: DIABETES MELLITUS
     Dosage: 5 MG
     Route: 048
     Dates: start: 20110801, end: 20111101

REACTIONS (1)
  - COLON CANCER [None]
